FAERS Safety Report 8321365-4 (Version None)
Quarter: 2012Q2

REPORT INFORMATION
  Report Type: 
  Country: None (occurrence: None)
  Receive Date: 20120430
  Receipt Date: 20090924
  Transmission Date: 20120825
  Serious: No
  Sender: FDA-Public Use
  Company Number: US-TEVA-2009010656

PATIENT
  Sex: Female
  Weight: 90.8 kg

DRUGS (6)
  1. NUVIGIL [Suspect]
     Indication: SLEEP DISORDER
  2. ACCUPRIL [Concomitant]
     Dates: start: 19990101
  3. FUROSEMIDE [Concomitant]
     Dates: start: 20030101
  4. NUVIGIL [Suspect]
     Indication: NARCOLEPSY
     Route: 048
     Dates: start: 20090909
  5. SIMVASTATIN [Concomitant]
     Dates: start: 20080901
  6. MULTI-VITAMIN [Concomitant]

REACTIONS (2)
  - DRUG EFFECT PROLONGED [None]
  - INSOMNIA [None]
